FAERS Safety Report 24284949 (Version 1)
Quarter: 2024Q3

REPORT INFORMATION
  Report Type: Spontaneous
  Country: CA (occurrence: CA)
  Receive Date: 20240905
  Receipt Date: 20240905
  Transmission Date: 20241016
  Serious: Yes (Hospitalization)
  Sender: TEVA
  Company Number: CA-TEVA-VS-3237795

PATIENT
  Age: 1 Year
  Sex: Female
  Weight: 9 kg

DRUGS (14)
  1. VINCRISTINE [Suspect]
     Active Substance: VINCRISTINE
     Indication: Neuroectodermal neoplasm
     Dosage: VINCRISTINE SULFATE
     Route: 042
  2. ONDANSETRON [Concomitant]
     Active Substance: ONDANSETRON
     Indication: Product used for unknown indication
  3. TRIMETHOPRIM [Concomitant]
     Active Substance: TRIMETHOPRIM
     Indication: Product use in unapproved indication
  4. LACTULOSE [Concomitant]
     Active Substance: LACTULOSE
     Indication: Product use in unapproved indication
  5. CYCLOPHOSPHAMIDE [Suspect]
     Active Substance: CYCLOPHOSPHAMIDE
     Indication: Neuroectodermal neoplasm
     Dosage: POWDER FOR SOLUTION INTRAVENOUS
     Route: 042
  6. DEXRAZOXANE [Suspect]
     Active Substance: DEXRAZOXANE
     Indication: Neuroectodermal neoplasm
     Dosage: DEXRAZOXANE FOR INJECTION SINGLE USE VIAL?DOSAGE FORM: POWDER FOR SOLUTION INTRAVENOUS
     Route: 042
  7. DOXORUBICIN [Suspect]
     Active Substance: DOXORUBICIN
     Indication: Neuroectodermal neoplasm
     Dosage: DOSE FORM: SOLUTION INTRAVENOUS
     Route: 042
  8. EMEND [Concomitant]
     Active Substance: APREPITANT
     Indication: Product use in unapproved indication
  9. FILGRASTIM [Concomitant]
     Active Substance: FILGRASTIM
     Indication: Product use in unapproved indication
  10. MESNA [Suspect]
     Active Substance: MESNA
     Indication: Neuroectodermal neoplasm
     Route: 042
  11. CHOLECALCIFEROL [Concomitant]
     Active Substance: CHOLECALCIFEROL
     Indication: Product use in unapproved indication
  12. BACTRIM [Concomitant]
     Active Substance: SULFAMETHOXAZOLE\TRIMETHOPRIM
     Indication: Product use in unapproved indication
  13. MORPHINE [Concomitant]
     Active Substance: MORPHINE
     Indication: Product use in unapproved indication
  14. PIPERACILLIN AND TAZOBACTAM [Concomitant]
     Active Substance: PIPERACILLIN SODIUM\TAZOBACTAM SODIUM
     Indication: Product use in unapproved indication

REACTIONS (1)
  - Febrile neutropenia [Recovered/Resolved]
